FAERS Safety Report 23875028 (Version 4)
Quarter: 2024Q2

REPORT INFORMATION
  Report Type: Spontaneous
  Country: US (occurrence: US)
  Receive Date: 20240520
  Receipt Date: 20240626
  Transmission Date: 20240716
  Serious: Yes (Other)
  Sender: FDA-Public Use
  Company Number: US-AMGEN-USASP2024099032

PATIENT
  Age: 79 Year
  Sex: Female

DRUGS (2)
  1. REPATHA [Suspect]
     Active Substance: EVOLOCUMAB
     Indication: Blood cholesterol increased
     Dosage: 140 MILLIGRAM, Q2WK
     Route: 058
  2. REPATHA [Suspect]
     Active Substance: EVOLOCUMAB
     Dosage: 140 MILLIGRAM, QMO
     Route: 058

REACTIONS (13)
  - Diverticulitis [Unknown]
  - Drug ineffective [Unknown]
  - Device difficult to use [Unknown]
  - Gait disturbance [Unknown]
  - Impaired quality of life [Unknown]
  - Injection site bruising [Unknown]
  - Urinary tract infection [Unknown]
  - Oropharyngeal pain [Unknown]
  - Headache [Unknown]
  - Back pain [Unknown]
  - Influenza [Unknown]
  - Myalgia [Unknown]
  - Arthralgia [Unknown]

NARRATIVE: CASE EVENT DATE: 20240517
